FAERS Safety Report 9121019 (Version 6)
Quarter: 2013Q2

REPORT INFORMATION
  Report Type: Report from Study
  Country: US (occurrence: US)
  Receive Date: 20130226
  Receipt Date: 20130625
  Transmission Date: 20140414
  Serious: Yes (Hospitalization)
  Sender: FDA-Public Use
  Company Number: US-ROCHE-1157325

PATIENT
  Age: 51 Year
  Sex: Male

DRUGS (16)
  1. PEGASYS [Suspect]
     Indication: CHRONIC HEPATITIS C
     Route: 058
     Dates: start: 20121113, end: 201212
  2. PEGASYS [Suspect]
     Route: 058
     Dates: start: 201212, end: 20130423
  3. TELAPREVIR [Suspect]
     Indication: CHRONIC HEPATITIS C
     Route: 065
     Dates: start: 20121113, end: 20130205
  4. RIBAPAK [Suspect]
     Indication: CHRONIC HEPATITIS C
     Dosage: DIVIDED DOSES
     Route: 048
     Dates: start: 20121113, end: 20130118
  5. RIBAPAK [Suspect]
     Dosage: DIVIDED DOSES
     Route: 048
     Dates: start: 20130130, end: 20130423
  6. CITALOPRAM [Concomitant]
     Route: 065
  7. CITALOPRAM [Concomitant]
     Route: 065
  8. BACLOFEN [Concomitant]
  9. GABAPENTIN [Concomitant]
  10. TOPIRAMATE [Concomitant]
     Route: 065
     Dates: start: 20130105
  11. METHYLPREDNISOLON [Concomitant]
     Indication: PRURITUS
     Route: 065
  12. METHYLPREDNISOLON [Concomitant]
     Indication: RASH
  13. ONDANSETRON [Concomitant]
     Indication: ABDOMINAL DISCOMFORT
     Route: 065
  14. ONDANSETRON [Concomitant]
     Indication: NAUSEA
  15. PROCRIT [Concomitant]
     Route: 065
     Dates: start: 20130118
  16. PROCRIT [Concomitant]
     Route: 065
     Dates: start: 20130416, end: 201305

REACTIONS (38)
  - Pulmonary thrombosis [Unknown]
  - Nausea [Not Recovered/Not Resolved]
  - Anaemia [Not Recovered/Not Resolved]
  - Erythema [Unknown]
  - Injection site erythema [Unknown]
  - Haematochezia [Unknown]
  - Anal pruritus [Unknown]
  - Rash [Not Recovered/Not Resolved]
  - Abdominal pain upper [Unknown]
  - Epistaxis [Unknown]
  - Headache [Unknown]
  - Vision blurred [Unknown]
  - Cataract [Unknown]
  - Platelet count abnormal [Unknown]
  - Fatigue [Unknown]
  - Malaise [Unknown]
  - Dry eye [Unknown]
  - Hypoaesthesia [Unknown]
  - Dysgeusia [Unknown]
  - Blood iron increased [Unknown]
  - Injection site irritation [Unknown]
  - Injection site rash [Unknown]
  - Decreased appetite [Unknown]
  - Weight decreased [Unknown]
  - Paraesthesia [Unknown]
  - Influenza like illness [Not Recovered/Not Resolved]
  - Ophthalmoplegia [Unknown]
  - Pain [Not Recovered/Not Resolved]
  - Erythema [Unknown]
  - Dry mouth [Unknown]
  - Dizziness exertional [Unknown]
  - Oropharyngeal pain [Unknown]
  - Dry skin [Unknown]
  - Fatigue [Unknown]
  - Nausea [Unknown]
  - Skin induration [Unknown]
  - Rash macular [Not Recovered/Not Resolved]
  - Alopecia [Unknown]
